FAERS Safety Report 4926319-3 (Version None)
Quarter: 2006Q1

REPORT INFORMATION
  Report Type: 
  Country: None (occurrence: None)
  Receive Date: 20060228
  Receipt Date: 20051025
  Transmission Date: 20060701
  Serious: No
  Sender: FDA-Public Use
  Company Number: US-GLAXOSMITHKLINE-A0579963A

PATIENT
  Age: 39 Year
  Sex: Male

DRUGS (3)
  1. LAMICTAL [Suspect]
     Route: 048
     Dates: start: 20050709, end: 20050829
  2. LITHIUM [Concomitant]
     Route: 065
  3. DEPAKOTE [Concomitant]
     Dosage: 100MG UNKNOWN
     Route: 065

REACTIONS (5)
  - BALANITIS [None]
  - CHAPPED LIPS [None]
  - DRY SKIN [None]
  - MUCOSAL INFLAMMATION [None]
  - STOMATITIS [None]
